FAERS Safety Report 4676675-9 (Version None)
Quarter: 2005Q2

REPORT INFORMATION
  Report Type: 
  Country: None (occurrence: None)
  Receive Date: 20050527
  Receipt Date: 20050218
  Transmission Date: 20051028
  Serious: Yes (Hospitalization, Other)
  Sender: FDA-Public Use
  Company Number: 2005UW02955

PATIENT
  Age: 78 Year
  Sex: Female
  Weight: 48 kg

DRUGS (2)
  1. CRESTOR [Suspect]
     Route: 048
     Dates: end: 20041007
  2. BETABLOCKER [Concomitant]
     Dates: end: 20041007

REACTIONS (5)
  - COGNITIVE DETERIORATION [None]
  - COMA [None]
  - CONVULSION [None]
  - TREMOR [None]
  - VOMITING [None]
